FAERS Safety Report 11664389 (Version 1)
Quarter: 2015Q4

REPORT INFORMATION
  Report Type: Spontaneous
  Country: US (occurrence: None)
  Receive Date: 20151026
  Receipt Date: 20151026
  Transmission Date: 20160304
  Serious: Yes (Disabling)
  Sender: FDA-Public Use
  Company Number: None

PATIENT
  Age: 52 Year
  Sex: Female
  Weight: 83.92 kg

DRUGS (4)
  1. TURMERIC [Concomitant]
     Active Substance: TURMERIC
  2. ESTRADIOL. [Concomitant]
     Active Substance: ESTRADIOL
  3. LEVOFLOXACIN. [Suspect]
     Active Substance: LEVOFLOXACIN
     Indication: PRODUCT USED FOR UNKNOWN INDICATION
     Route: 048
     Dates: start: 20120201, end: 20120204
  4. FISH OIL [Concomitant]
     Active Substance: FISH OIL

REACTIONS (36)
  - Muscle tightness [None]
  - Paraesthesia [None]
  - Tendon pain [None]
  - Joint crepitation [None]
  - Pain [None]
  - Activities of daily living impaired [None]
  - Drug effect decreased [None]
  - Abasia [None]
  - Pain of skin [None]
  - Neuralgia [None]
  - Dyspnoea [None]
  - Suicidal ideation [None]
  - Musculoskeletal pain [None]
  - Asthenia [None]
  - Chills [None]
  - Anxiety [None]
  - Fine motor skill dysfunction [None]
  - Fatigue [None]
  - Feeling abnormal [None]
  - Disturbance in attention [None]
  - Weight bearing difficulty [None]
  - Insomnia [None]
  - Burning sensation [None]
  - Bone disorder [None]
  - Neuropathy peripheral [None]
  - Hallucination [None]
  - Cognitive disorder [None]
  - Tinnitus [None]
  - Tendonitis [None]
  - Memory impairment [None]
  - Exercise tolerance decreased [None]
  - Myalgia [None]
  - Rash [None]
  - Palpitations [None]
  - Cardiac disorder [None]
  - Muscle twitching [None]

NARRATIVE: CASE EVENT DATE: 20120201
